FAERS Safety Report 4563945-8 (Version None)
Quarter: 2005Q1

REPORT INFORMATION
  Report Type: 
  Country: None (occurrence: None)
  Receive Date: 20050125
  Receipt Date: 20050125
  Transmission Date: 20050727
  Serious: Yes (Disabling)
  Sender: FDA-Public Use
  Company Number: None

PATIENT
  Age: 61 Year
  Sex: Female
  Weight: 79.3795 kg

DRUGS (1)
  1. ZETIA [Suspect]
     Indication: BLOOD CHOLESTEROL INCREASED
     Dosage: 10MG 1X/DAY
     Dates: start: 20040601, end: 20040701

REACTIONS (20)
  - ANTINUCLEAR ANTIBODY POSITIVE [None]
  - ASTHENIA [None]
  - BALANCE DISORDER [None]
  - CARPAL TUNNEL DECOMPRESSION [None]
  - CUBITAL TUNNEL SYNDROME [None]
  - DECREASED ACTIVITY [None]
  - DIFFICULTY IN WALKING [None]
  - EATING DISORDER [None]
  - FALL [None]
  - HAND FRACTURE [None]
  - HYPOAESTHESIA [None]
  - INSOMNIA [None]
  - MENTAL DISORDER [None]
  - MUSCLE SPASMS [None]
  - NERVE COMPRESSION [None]
  - NEUROPATHY [None]
  - PAIN [None]
  - PANIC REACTION [None]
  - PARAESTHESIA [None]
  - WEIGHT DECREASED [None]
